FAERS Safety Report 13256739 (Version 1)
Quarter: 2017Q1

REPORT INFORMATION
  Report Type: Spontaneous
  Country: US (occurrence: US)
  Receive Date: 20170221
  Receipt Date: 20170221
  Transmission Date: 20170428
  Serious: Yes (Other)
  Sender: FDA-Public Use
  Company Number: None

PATIENT
  Age: 9 Year
  Sex: Male
  Weight: 27 kg

DRUGS (1)
  1. MIRALAX [Suspect]
     Active Substance: POLYETHYLENE GLYCOL 3350
     Indication: CONSTIPATION
     Dosage: ?          QUANTITY:2 CAPFULS;?
     Route: 048
     Dates: start: 20110201, end: 20140828

REACTIONS (5)
  - Anger [None]
  - Mania [None]
  - Impulsive behaviour [None]
  - Aggression [None]
  - Learning disability [None]

NARRATIVE: CASE EVENT DATE: 20110201
